FAERS Safety Report 20827648 (Version 1)
Quarter: 2022Q2

REPORT INFORMATION
  Report Type: Spontaneous
  Country: US (occurrence: US)
  Receive Date: 20220513
  Receipt Date: 20220513
  Transmission Date: 20220721
  Serious: Yes (Hospitalization)
  Sender: FDA-Public Use
  Company Number: US-MYLANLABS-2022M1035102

PATIENT
  Age: 34 Year
  Sex: Male

DRUGS (15)
  1. BACLOFEN [Suspect]
     Active Substance: BACLOFEN
     Indication: Withdrawal syndrome
     Dosage: 5 MILLIGRAM, TID, THREE TIMES IN A DAY
     Route: 065
  2. GABAPENTIN [Suspect]
     Active Substance: GABAPENTIN
     Indication: Withdrawal syndrome
     Dosage: 100 MILLIGRAM, BID
     Route: 065
  3. RISPERIDONE [Suspect]
     Active Substance: RISPERIDONE
     Indication: Withdrawal syndrome
     Dosage: 0.25 MILLIGRAM, BID, ADMINISTERED UNDER A TRIAL
     Route: 065
  4. OLANZAPINE [Suspect]
     Active Substance: OLANZAPINE
     Indication: Withdrawal syndrome
     Dosage: UNK
     Route: 065
  5. HALOPERIDOL [Suspect]
     Active Substance: HALOPERIDOL
     Indication: Withdrawal syndrome
     Dosage: UNK
     Route: 065
  6. ACAMPROSATE [Suspect]
     Active Substance: ACAMPROSATE
     Indication: Withdrawal syndrome
     Dosage: 666 MILLIGRAM, TID, THREE TIMES IN A DAY
     Route: 065
  7. ACAMPROSATE [Suspect]
     Active Substance: ACAMPROSATE
     Dosage: 333 MILLIGRAM, TID, THREE TIMES IN A DAY
     Route: 065
  8. ACAMPROSATE [Suspect]
     Active Substance: ACAMPROSATE
     Dosage: 333 MILLIGRAM, BID, TWO TIMES IN A DAY
     Route: 065
  9. ACAMPROSATE [Suspect]
     Active Substance: ACAMPROSATE
     Dosage: DOSE DECREASED
     Route: 065
  10. 4-AMINO-3-PHENYLBUTYRIC ACID [Concomitant]
     Active Substance: 4-AMINO-3-PHENYLBUTYRIC ACID
     Indication: Drug use disorder
     Dosage: 1 GRAM, QD, MIXED WITH WATER AND ADMINISTERED
     Route: 065
  11. 4-AMINO-3-PHENYLBUTYRIC ACID [Concomitant]
     Active Substance: 4-AMINO-3-PHENYLBUTYRIC ACID
     Dosage: 4-5 G MIXED WITH WATER AND ADMINISTERED, QD
     Route: 065
  12. 4-AMINO-3-PHENYLBUTYRIC ACID [Concomitant]
     Active Substance: 4-AMINO-3-PHENYLBUTYRIC ACID
     Dosage: 8-12 G MIXED WITH WATER AND ADMINISTERED, QD
     Route: 065
  13. 4-AMINO-3-PHENYLBUTYRIC ACID [Concomitant]
     Active Substance: 4-AMINO-3-PHENYLBUTYRIC ACID
     Dosage: APPROXIMATELY 28.5 G MIXED WITH WATER AND ADMINISTERED, QD
     Route: 065
  14. WELLBUTRIN [Concomitant]
     Active Substance: BUPROPION HYDROCHLORIDE
     Indication: Attention deficit hyperactivity disorder
     Dosage: UNK
     Route: 065
  15. VYVANSE [Concomitant]
     Active Substance: LISDEXAMFETAMINE DIMESYLATE
     Indication: Attention deficit hyperactivity disorder
     Dosage: UNK
     Route: 065

REACTIONS (2)
  - Drug ineffective for unapproved indication [Unknown]
  - Off label use [Unknown]
